FAERS Safety Report 15314250 (Version 1)
Quarter: 2018Q3

REPORT INFORMATION
  Report Type: Spontaneous
  Country: US (occurrence: US)
  Receive Date: 20180824
  Receipt Date: 20180824
  Transmission Date: 20181010
  Serious: No
  Sender: FDA-Public Use
  Company Number: US-PFIZER INC-2018340372

PATIENT
  Age: 64 Year
  Sex: Female
  Weight: 92 kg

DRUGS (1)
  1. IBRANCE [Suspect]
     Active Substance: PALBOCICLIB
     Indication: BREAST CANCER FEMALE
     Dosage: 125 MG, CYCLIC (D1?D21,Q 28 D)
     Route: 048
     Dates: start: 201709

REACTIONS (6)
  - Stomatitis [Unknown]
  - Pain in extremity [Unknown]
  - Muscle spasms [Unknown]
  - Noninfective gingivitis [Unknown]
  - Cheilitis [Unknown]
  - Drug administration error [Unknown]
